FAERS Safety Report 18305782 (Version 6)
Quarter: 2021Q1

REPORT INFORMATION
  Report Type: Report from Study
  Country: RU (occurrence: RU)
  Receive Date: 20200923
  Receipt Date: 20210203
  Transmission Date: 20210419
  Serious: Yes (Other)
  Sender: FDA-Public Use
  Company Number: RU-ALLERGAN-2035283US

PATIENT
  Sex: Female
  Weight: 90 kg

DRUGS (2)
  1. BIMATOPROST 0.015 MG INS (11048X) [Suspect]
     Active Substance: BIMATOPROST
     Dosage: 0.015 MG, SINGLE
     Route: 031
     Dates: start: 20191014, end: 20200310
  2. BIMATOPROST 0.015 MG INS (11048X) [Suspect]
     Active Substance: BIMATOPROST
     Indication: OPEN ANGLE GLAUCOMA
     Dosage: 0.015 MG, SINGLE
     Route: 031
     Dates: start: 20200129, end: 20200310

REACTIONS (1)
  - Cataract [Recovered/Resolved]

NARRATIVE: CASE EVENT DATE: 20200910
